FAERS Safety Report 9030483 (Version 1)
Quarter: 2013Q1

REPORT INFORMATION
  Report Type: Spontaneous
  Country: US (occurrence: US)
  Receive Date: 20130122
  Receipt Date: 20130122
  Transmission Date: 20140127
  Serious: No
  Sender: FDA-Public Use
  Company Number: US-ASTRAZENECA-2013SE01895

PATIENT
  Age: 14 Year
  Sex: Male
  Weight: 54.4 kg

DRUGS (3)
  1. QUETIAPINE [Suspect]
     Indication: BIPOLAR DISORDER
     Route: 048
  2. CONCERTA [Concomitant]
     Indication: BIPOLAR DISORDER
  3. VALPROIC ACID [Concomitant]
     Indication: BIPOLAR DISORDER

REACTIONS (3)
  - Tension [Recovered/Resolved]
  - Agitation [Recovered/Resolved]
  - Heart rate increased [Recovered/Resolved]
